FAERS Safety Report 20818086 (Version 1)
Quarter: 2022Q2

REPORT INFORMATION
  Report Type: Spontaneous
  Country: CZ (occurrence: CZ)
  Receive Date: 20220512
  Receipt Date: 20220512
  Transmission Date: 20220721
  Serious: No
  Sender: FDA-Public Use
  Company Number: CZ-LUPIN PHARMACEUTICALS INC.-2022-06748

PATIENT
  Age: 27 Year
  Sex: Female

DRUGS (21)
  1. LEVOTHYROXINE [Suspect]
     Active Substance: LEVOTHYROXINE
     Indication: Product used for unknown indication
     Dosage: 75 MCG, UNK (75MCG FOR 8 DAYS ADMINISTERED VIA NASOGASTRIC TUBE)
     Route: 065
  2. LEVOTHYROXINE [Suspect]
     Active Substance: LEVOTHYROXINE
     Dosage: 100 MCG, UNK (100MCG FOR 5 DAYS ADMINISTERED VIA NASOGASTRIC TUBE)
     Route: 065
  3. LEVOTHYROXINE [Suspect]
     Active Substance: LEVOTHYROXINE
     Dosage: 125 MCG, UNK (125MCG FOR 49 DAYS ADMINISTERED VIA NASOGASTRIC TUBE)
     Route: 065
  4. LEVOTHYROXINE [Suspect]
     Active Substance: LEVOTHYROXINE
     Dosage: 125 MCG, UNK (125MCG 5 DAYS PER WEEK ADMINISTERED VIA NASOGASTRIC TUBE)
     Route: 065
  5. LEVOTHYROXINE [Suspect]
     Active Substance: LEVOTHYROXINE
     Dosage: 137 MCG, UNK (137MCG PER 3 DAYS FOR 39 DAYS ADMINISTERED VIA NASOGASTRIC TUBE)
     Route: 065
  6. HYDROCORTISONE [Suspect]
     Active Substance: HYDROCORTISONE
     Indication: Product used for unknown indication
     Dosage: 100 MG, UNK (100 MG DAILY IN 2 DIVIDED DOSES)
     Route: 042
  7. HYDROCORTISONE [Suspect]
     Active Substance: HYDROCORTISONE
     Dosage: 50 MG, QD
     Route: 042
  8. HYDROCORTISONE [Suspect]
     Active Substance: HYDROCORTISONE
     Dosage: 30 MG, UNK (30MG DAILY IN 2 DIVIDED DOSES)
     Route: 042
  9. HYDROCORTISONE [Suspect]
     Active Substance: HYDROCORTISONE
     Dosage: 200 MG, QD (INCREASED TO 200MG DAILY IN CASE OF INFECTION)
     Route: 042
  10. BETAMETHASONE [Suspect]
     Active Substance: BETAMETHASONE
     Indication: Maternal therapy to enhance foetal lung maturity
     Dosage: UNK
     Route: 065
  11. NOREPINEPHRINE [Suspect]
     Active Substance: NOREPINEPHRINE
     Indication: Vasopressive therapy
     Dosage: UNK
     Route: 042
  12. DOPAMINE [Suspect]
     Active Substance: DOPAMINE HYDROCHLORIDE
     Indication: Vasopressive therapy
     Dosage: UNK
     Route: 065
  13. DESMOPRESSIN [Suspect]
     Active Substance: DESMOPRESSIN
     Indication: Diabetes insipidus
     Dosage: 60 MICROGRAM, QD
     Route: 065
  14. DESMOPRESSIN [Suspect]
     Active Substance: DESMOPRESSIN
     Dosage: 90 MICROGRAM, QD
     Route: 065
  15. AMPICILLIN SODIUM\SULBACTAM SODIUM [Suspect]
     Active Substance: AMPICILLIN SODIUM\SULBACTAM SODIUM
     Indication: Pneumonia staphylococcal
     Dosage: UNK
     Route: 042
  16. AMPICILLIN SODIUM\SULBACTAM SODIUM [Suspect]
     Active Substance: AMPICILLIN SODIUM\SULBACTAM SODIUM
     Indication: Pneumonia pneumococcal
  17. PIPERACILLIN SODIUM\TAZOBACTAM SODIUM [Suspect]
     Active Substance: PIPERACILLIN SODIUM\TAZOBACTAM SODIUM
     Indication: Pneumonia klebsiella
     Dosage: UNK
     Route: 042
  18. MEROPENEM [Suspect]
     Active Substance: MEROPENEM
     Indication: Urinary tract infection
     Dosage: UNK
     Route: 065
  19. AMPICILLIN [Suspect]
     Active Substance: AMPICILLIN
     Indication: Urinary tract infection
     Dosage: UNK
     Route: 065
  20. NIFURATEL [Suspect]
     Active Substance: NIFURATEL
     Indication: Vaginal infection
     Dosage: UNK
     Route: 065
  21. CHOLECALCIFEROL [Suspect]
     Active Substance: CHOLECALCIFEROL
     Indication: Vitamin supplementation
     Dosage: 1500 INTERNATIONAL UNIT, QD
     Route: 065

REACTIONS (2)
  - Exposure during pregnancy [Unknown]
  - Normal newborn [Unknown]
